FAERS Safety Report 4928637-1 (Version None)
Quarter: 2006Q1

REPORT INFORMATION
  Report Type: 
  Country: None (occurrence: None)
  Receive Date: 20060227
  Receipt Date: 20060227
  Transmission Date: 20060701
  Serious: Yes (Life-Threatening, Hospitalization, Other)
  Sender: FDA-Public Use
  Company Number: None

PATIENT
  Age: 31 Year
  Sex: Female
  Weight: 88.4514 kg

DRUGS (1)
  1. ORTHO EVRA [Suspect]
     Indication: CONTRACEPTION
     Dosage: 1 PATCH  WEEKLY   TRANSDERMAL
     Route: 062
     Dates: start: 20030301, end: 20060101

REACTIONS (3)
  - DEEP VEIN THROMBOSIS [None]
  - IMPAIRED WORK ABILITY [None]
  - PULMONARY EMBOLISM [None]
